FAERS Safety Report 4332359-8 (Version None)
Quarter: 2004Q1

REPORT INFORMATION
  Report Type: 
  Country: None (occurrence: None)
  Receive Date: 20040329
  Receipt Date: 20040129
  Transmission Date: 20041129
  Serious: No
  Sender: FDA-Public Use
  Company Number: 04P-163-0248828-00

PATIENT
  Age: 65 Year
  Sex: Female
  Weight: 73.0291 kg

DRUGS (3)
  1. HUMIRA [Suspect]
     Indication: RHEUMATOID ARTHRITIS
     Dates: start: 20030601
  2. PREDNISONE [Concomitant]
  3. CELECOXIB [Concomitant]

REACTIONS (2)
  - ABDOMINAL PAIN [None]
  - WEIGHT INCREASED [None]
